FAERS Safety Report 4369444-0 (Version None)
Quarter: 2004Q2

REPORT INFORMATION
  Report Type: 
  Country: None (occurrence: None)
  Receive Date: 20040527
  Receipt Date: 20040506
  Transmission Date: 20050107
  Serious: Yes (Hospitalization)
  Sender: FDA-Public Use
  Company Number: US_0403101364

PATIENT
  Age: 73 Year
  Sex: Female

DRUGS (6)
  1. GEMCITABINE HYDROCHLORIDE-IV (GEMCITABINE) [Suspect]
     Indication: PANCREATIC CARCINOMA RESECTABLE
     Dosage: 750 MG/M2 OTHER
     Dates: start: 20031021, end: 20040110
  2. CISPLATIN [Suspect]
     Indication: PANCREATIC CARCINOMA RESECTABLE
     Dosage: 30 MG/M2 OTHER
     Dates: start: 20031021, end: 20031202
  3. RADIATION THERAPY [Suspect]
     Indication: PANCREATIC CARCINOMA RESECTABLE
     Dates: start: 20031127, end: 20040113
  4. DIGOXIN [Concomitant]
  5. NEXIUM [Concomitant]
  6. CELEBREX [Concomitant]

REACTIONS (15)
  - ABDOMINAL ADHESIONS [None]
  - ANOREXIA [None]
  - ASTHENIA [None]
  - DUODENAL ULCER [None]
  - GASTRITIS [None]
  - HAEMORRHAGE [None]
  - HEPATIC CONGESTION [None]
  - HEPATIC INFARCTION [None]
  - HEPATIC NECROSIS [None]
  - INFLAMMATION [None]
  - INTESTINAL INFARCTION [None]
  - LIVER DISORDER [None]
  - LYMPHADENOPATHY [None]
  - NAUSEA [None]
  - VOMITING [None]
